FAERS Safety Report 7113140-3 (Version None)
Quarter: 2010Q4

REPORT INFORMATION
  Report Type: 
  Country: None (occurrence: None)
  Receive Date: 20101119
  Receipt Date: 20101118
  Transmission Date: 20110411
  Serious: Yes (Death, Other)
  Sender: FDA-Public Use
  Company Number: AU-PURDUE-USA-2005-0020888

PATIENT
  Age: 4 Year

DRUGS (1)
  1. OXYCONTIN [Suspect]
     Indication: PRODUCT USED FOR UNKNOWN INDICATION
     Dosage: 80 MG, UNK
     Route: 065

REACTIONS (2)
  - ACCIDENTAL DRUG INTAKE BY CHILD [None]
  - DEATH [None]
